FAERS Safety Report 6325823-3 (Version None)
Quarter: 2009Q3

REPORT INFORMATION
  Report Type: 
  Country: None (occurrence: None)
  Receive Date: 20090824
  Receipt Date: 20090812
  Transmission Date: 20100115
  Serious: Yes (Death, Other)
  Sender: FDA-Public Use
  Company Number: CR-WYE-H10632809

PATIENT
  Age: 77 Year
  Sex: Male

DRUGS (5)
  1. PANTECTA [Suspect]
     Indication: GASTROINTESTINAL HAEMORRHAGE
     Route: 048
     Dates: start: 20090101
  2. BLOOD AND RELATED PRODUCTS [Concomitant]
     Indication: ANAEMIA
     Dosage: UNKNOWN
     Route: 042
     Dates: start: 20090101
  3. IRON [Concomitant]
     Indication: ANAEMIA
     Dosage: UNKNOWN
     Dates: start: 20090101
  4. ENALAPRIL MALEATE [Concomitant]
  5. DIGOXIN [Concomitant]

REACTIONS (8)
  - ANAEMIA [None]
  - BRONCHITIS BACTERIAL [None]
  - BRONCHOSPASM [None]
  - CARDIAC FAILURE [None]
  - CONDITION AGGRAVATED [None]
  - IMMUNOSUPPRESSION [None]
  - INFLUENZA [None]
  - LEUKOCYTOSIS [None]
